FAERS Safety Report 19132156 (Version 1)
Quarter: 2021Q2

REPORT INFORMATION
  Report Type: Spontaneous
  Country: US (occurrence: US)
  Receive Date: 20210413
  Receipt Date: 20210413
  Transmission Date: 20210717
  Serious: No
  Sender: FDA-Public Use
  Company Number: US-TEVA-2021-US-1899021

PATIENT

DRUGS (2)
  1. COPAXONE [Suspect]
     Active Substance: GLATIRAMER ACETATE
     Route: 065
  2. AUTOINJECTOR [DEVICE] [Suspect]
     Active Substance: DEVICE
     Route: 065

REACTIONS (2)
  - Injection site pain [Unknown]
  - Needle issue [Unknown]
